FAERS Safety Report 11135344 (Version 3)
Quarter: 2016Q2

REPORT INFORMATION
  Report Type: Spontaneous
  Country: DK (occurrence: DK)
  Receive Date: 20150525
  Receipt Date: 20160628
  Transmission Date: 20160815
  Serious: Yes (Other)
  Sender: FDA-Public Use
  Company Number: PHHY2015DK061786

PATIENT
  Age: 69 Year
  Sex: Male

DRUGS (2)
  1. XGEVA [Suspect]
     Active Substance: DENOSUMAB
     Indication: METASTASES TO BONE
     Dosage: 120 MG, UNK
     Route: 058
     Dates: start: 20131212, end: 20150316
  2. ZOMETA [Suspect]
     Active Substance: ZOLEDRONIC ACID
     Indication: METASTASES TO BONE
     Dosage: 4 MG, UNK
     Route: 042
     Dates: start: 20131017

REACTIONS (7)
  - Abscess [Unknown]
  - Exposed bone in jaw [Unknown]
  - Swelling [Unknown]
  - Pain [Unknown]
  - Osteonecrosis of jaw [Not Recovered/Not Resolved]
  - Erythema [Unknown]
  - Fistula [Unknown]

NARRATIVE: CASE EVENT DATE: 20150312
